FAERS Safety Report 4790889-9 (Version None)
Quarter: 2005Q3

REPORT INFORMATION
  Report Type: 
  Country: None (occurrence: None)
  Receive Date: 20050914
  Receipt Date: 20040819
  Transmission Date: 20060218
  Serious: Yes (Death)
  Sender: FDA-Public Use
  Company Number: 163-20785-04080413

PATIENT
  Age: 11 Year
  Sex: Female

DRUGS (3)
  1. THALOMID [Suspect]
     Indication: HEPATIC NEOPLASM MALIGNANT
     Dosage: 750 MG, DAILY, ORAL
     Route: 048
     Dates: start: 20040129, end: 20040503
  2. THALOMID [Suspect]
     Indication: METASTASES TO CENTRAL NERVOUS SYSTEM
     Dosage: 750 MG, DAILY, ORAL
     Route: 048
     Dates: start: 20040129, end: 20040503
  3. THALOMID [Suspect]
     Indication: METASTASES TO LUNG
     Dosage: 750 MG, DAILY, ORAL
     Route: 048
     Dates: start: 20040129, end: 20040503

REACTIONS (3)
  - DEATH [None]
  - DISEASE PROGRESSION [None]
  - FATIGUE [None]
